FAERS Safety Report 4802905-6 (Version None)
Quarter: 2005Q4

REPORT INFORMATION
  Report Type: 
  Country: None (occurrence: None)
  Receive Date: 20051017
  Receipt Date: 20051017
  Transmission Date: 20060501
  Serious: Yes (Other)
  Sender: FDA-Public Use
  Company Number: None

PATIENT
  Sex: Female
  Weight: 63.5036 kg

DRUGS (1)
  1. MICRONIZED PROGESTERONE 2 OZ.     FREELIFE INTERNATIONAL [Suspect]
     Indication: MENOPAUSAL SYMPTOMS
     Dosage: 1/8 2X DAY TOPICAL
     Route: 061
     Dates: start: 20010901, end: 20011201

REACTIONS (6)
  - ASTHENIA [None]
  - DEPRESSION [None]
  - INSOMNIA [None]
  - IRRITABILITY [None]
  - THINKING ABNORMAL [None]
  - WEIGHT INCREASED [None]
